FAERS Safety Report 6718676-2 (Version None)
Quarter: 2010Q2

REPORT INFORMATION
  Report Type: 
  Country: None (occurrence: None)
  Receive Date: 20100506
  Receipt Date: 20100426
  Transmission Date: 20101027
  Serious: Yes (Death)
  Sender: FDA-Public Use
  Company Number: APP201000293

PATIENT
  Age: 61 Year
  Sex: Male

DRUGS (4)
  1. CARBOPLATIN [Suspect]
     Indication: TRANSITIONAL CELL CARCINOMA
     Dosage: 5, TARGET AUC 5MG*MIN/ML, 6 CYCLES
  2. PLACLITAXEL INJECTION, USP (PACLITAXEL) [Suspect]
     Indication: TRANSITIONAL CELL CARCINOMA
     Dosage: 200 MG/M2, DAY 1 EVERY 21 DAYS FOR 6 CYCLES
  3. GEMICTABINE [Suspect]
     Indication: TRANSITIONAL CELL CARCINOMA
     Dosage: 800 MG/MG, DAYS 1 AND 8 EVERY 21 DAYS FOR 6 CYCLES
  4. TRASTUZUMAB [Suspect]
     Indication: TRANSITIONAL CELL CARCINOMA
     Dosage: 4 MG/KG, DAYS 1, 8, 15 EVERY 21 DAYS FOR 6 CYCLES

REACTIONS (10)
  - AXONAL NEUROPATHY [None]
  - DEMYELINATING POLYNEUROPATHY [None]
  - DRUG EFFECT DECREASED [None]
  - METASTASES TO CENTRAL NERVOUS SYSTEM [None]
  - METASTASES TO MENINGES [None]
  - NERVE COMPRESSION [None]
  - PERIPHERAL SENSORIMOTOR NEUROPATHY [None]
  - PROCEDURAL COMPLICATION [None]
  - REFUSAL OF TREATMENT BY PATIENT [None]
  - UROSEPSIS [None]
